FAERS Safety Report 8132806-X (Version None)
Quarter: 2012Q1

REPORT INFORMATION
  Report Type: 
  Country: None (occurrence: None)
  Receive Date: 20120213
  Receipt Date: 20120125
  Transmission Date: 20120608
  Serious: Yes (Hospitalization, Other)
  Sender: FDA-Public Use
  Company Number: GB-MERCK-1202GBR00069

PATIENT
  Age: 51 Year
  Sex: Male

DRUGS (2)
  1. METFORMIN [Concomitant]
     Route: 065
  2. ZOCOR [Suspect]
     Route: 065

REACTIONS (9)
  - JAUNDICE [None]
  - THROMBOCYTOPENIA [None]
  - THROMBOTIC THROMBOCYTOPENIC PURPURA [None]
  - PYREXIA [None]
  - FLANK PAIN [None]
  - MYALGIA [None]
  - CHROMATURIA [None]
  - LETHARGY [None]
  - MICROANGIOPATHIC HAEMOLYTIC ANAEMIA [None]
